FAERS Safety Report 7450748-X (Version None)
Quarter: 2011Q2

REPORT INFORMATION
  Report Type: 
  Country: None (occurrence: None)
  Receive Date: 20110502
  Receipt Date: 20110421
  Transmission Date: 20111010
  Serious: Yes (Life-Threatening)
  Sender: FDA-Public Use
  Company Number: FR-ELI_LILLY_AND_COMPANY-FR201104003699

PATIENT
  Sex: Male

DRUGS (6)
  1. EUPANTOL [Concomitant]
     Indication: SUPPLEMENTATION THERAPY
     Dosage: UNK
     Route: 042
     Dates: start: 20110303
  2. METHYLPREDNISOLONE [Concomitant]
     Indication: SUPPLEMENTATION THERAPY
     Dosage: UNK
     Dates: start: 20110303
  3. ALIMTA [Suspect]
     Indication: LUNG ADENOCARCINOMA METASTATIC
     Dosage: 1000 MG, UNK
     Route: 042
     Dates: start: 20110303
  4. ONDANSETRON [Concomitant]
     Indication: SUPPLEMENTATION THERAPY
     Dosage: UNK
     Dates: start: 20110303
  5. CISPLATIN [Concomitant]
     Indication: LUNG ADENOCARCINOMA METASTATIC
     Dosage: UNK
     Dates: start: 20110303
  6. EMEND [Concomitant]
     Indication: VITAMIN SUPPLEMENTATION
     Dosage: UNK
     Route: 048
     Dates: start: 20110303

REACTIONS (4)
  - OEDEMA [None]
  - URTICARIA [None]
  - ANAPHYLACTIC SHOCK [None]
  - PYREXIA [None]
